FAERS Safety Report 19689491 (Version 1)
Quarter: 2021Q3

REPORT INFORMATION
  Report Type: Spontaneous
  Country: SK (occurrence: SK)
  Receive Date: 20210811
  Receipt Date: 20210811
  Transmission Date: 20211014
  Serious: Yes (Death, Hospitalization)
  Sender: FDA-Public Use
  Company Number: SK-INCYTE CORPORATION-2021IN005942

PATIENT

DRUGS (1)
  1. JAKAVI [Suspect]
     Active Substance: RUXOLITINIB
     Indication: MYELOFIBROSIS
     Dosage: 7.5 MG, BID
     Route: 048
     Dates: start: 202102, end: 202102

REACTIONS (3)
  - Anaemia [Unknown]
  - Liver disorder [Unknown]
  - COVID-19 [Fatal]

NARRATIVE: CASE EVENT DATE: 202102
